FAERS Safety Report 18928260 (Version 1)
Quarter: 2021Q1

REPORT INFORMATION
  Report Type: Spontaneous
  Country: FR (occurrence: FR)
  Receive Date: 20210223
  Receipt Date: 20210223
  Transmission Date: 20210420
  Serious: Yes (Other)
  Sender: FDA-Public Use
  Company Number: ALC2021FR001379

PATIENT

DRUGS (1)
  1. ATROPINE ALCON 0,5% COLLYRE [Suspect]
     Active Substance: ATROPINE
     Indication: CYCLOPLEGIA
     Dosage: 2 DRP, QD
     Route: 047
     Dates: start: 20210129, end: 20210202

REACTIONS (2)
  - Hallucination, visual [Recovering/Resolving]
  - Confusional state [Recovering/Resolving]

NARRATIVE: CASE EVENT DATE: 20210203
